FAERS Safety Report 8337606-3 (Version None)
Quarter: 2012Q2

REPORT INFORMATION
  Report Type: 
  Country: None (occurrence: None)
  Receive Date: 20120504
  Receipt Date: 20061107
  Transmission Date: 20120825
  Serious: Yes (Hospitalization)
  Sender: FDA-Public Use
  Company Number: FR-ROCHE-470481

PATIENT
  Age: 41 Year
  Sex: Female

DRUGS (2)
  1. CISPLATIN [Concomitant]
     Indication: CERVIX CARCINOMA
  2. XELODA [Suspect]
     Indication: CERVIX CARCINOMA
     Route: 065

REACTIONS (3)
  - STOMATITIS [None]
  - DIARRHOEA [None]
  - BONE MARROW FAILURE [None]
